FAERS Safety Report 25733125 (Version 2)
Quarter: 2025Q3

REPORT INFORMATION
  Report Type: Spontaneous
  Country: US (occurrence: US)
  Receive Date: 20250828
  Receipt Date: 20250911
  Transmission Date: 20251020
  Serious: Yes (Hospitalization, Other)
  Sender: CURRAX PHARMACEUTICALS
  Company Number: US-NALPROPION PHARMACEUTICALS INC.-US-2025CUR001287

PATIENT
  Sex: Female

DRUGS (2)
  1. CONTRAVE [Suspect]
     Active Substance: BUPROPION HYDROCHLORIDE\NALTREXONE HYDROCHLORIDE
     Indication: Weight control
     Route: 048
     Dates: start: 202506, end: 2025
  2. CONTRAVE [Suspect]
     Active Substance: BUPROPION HYDROCHLORIDE\NALTREXONE HYDROCHLORIDE
     Route: 048
     Dates: start: 2025, end: 2025

REACTIONS (6)
  - Cardiac failure [Unknown]
  - Respiratory failure [Unknown]
  - Cardiac failure congestive [Unknown]
  - Suicidal ideation [Unknown]
  - Weight increased [Unknown]
  - Therapeutic product effect incomplete [Unknown]

NARRATIVE: CASE EVENT DATE: 20250101
